FAERS Safety Report 11448502 (Version 4)
Quarter: 2015Q4

REPORT INFORMATION
  Report Type: Spontaneous
  Country: JP (occurrence: JP)
  Receive Date: 20150902
  Receipt Date: 20151201
  Transmission Date: 20160304
  Serious: Yes (Hospitalization, Other)
  Sender: FDA-Public Use
  Company Number: JP-GSKJP-JP2015JPN122193AA

PATIENT
  Age: 34 Year
  Sex: Female

DRUGS (1)
  1. LAMICTAL [Suspect]
     Active Substance: LAMOTRIGINE
     Indication: BIPOLAR I DISORDER
     Dosage: 25 MG, QOD
     Route: 048
     Dates: start: 20150813, end: 20150825

REACTIONS (12)
  - Pyrexia [Recovering/Resolving]
  - Blister [Recovered/Resolved]
  - Lymphadenopathy [Unknown]
  - Rash [Unknown]
  - Toxic epidermal necrolysis [Unknown]
  - Ocular hyperaemia [Recovering/Resolving]
  - Erythema [Unknown]
  - Drug eruption [Unknown]
  - Generalised erythema [Recovered/Resolved]
  - Rash generalised [Recovering/Resolving]
  - Erythema of eyelid [Unknown]
  - Skin erosion [Unknown]

NARRATIVE: CASE EVENT DATE: 20150823
